FAERS Safety Report 10447490 (Version 4)
Quarter: 2015Q1

REPORT INFORMATION
  Report Type: Spontaneous
  Country: US (occurrence: US)
  Receive Date: 20140911
  Receipt Date: 20150227
  Transmission Date: 20150720
  Serious: Yes (Hospitalization, Other)
  Sender: FDA-Public Use
  Company Number: US-BAYER-2014-135780

PATIENT
  Age: 27 Year
  Sex: Female
  Weight: 73 kg

DRUGS (3)
  1. AYGESTIN [Concomitant]
     Active Substance: NORETHINDRONE ACETATE
  2. MIRENA [Suspect]
     Active Substance: LEVONORGESTREL
     Indication: CONTRACEPTION
     Dosage: 20 MCG/24HR, CONT
     Route: 015
     Dates: start: 20070802, end: 20080219
  3. MIRENA [Suspect]
     Active Substance: LEVONORGESTREL
     Indication: CONTRACEPTION
     Dosage: 20 MCG/24HR, CONT
     Route: 015
     Dates: start: 20061017, end: 20090319

REACTIONS (18)
  - Embedded device [None]
  - Depression [Not Recovered/Not Resolved]
  - Procedural pain [Not Recovered/Not Resolved]
  - Abdominal adhesions [None]
  - Endometriosis [None]
  - Device issue [None]
  - Medical device discomfort [None]
  - Anxiety [None]
  - Injury [None]
  - Uterine scar [None]
  - Device dislocation [None]
  - Infertility female [None]
  - Feeling abnormal [Not Recovered/Not Resolved]
  - Stress [None]
  - Emotional distress [None]
  - Mental disorder [None]
  - Device use error [None]
  - Abdominal pain [None]

NARRATIVE: CASE EVENT DATE: 2006
